FAERS Safety Report 17510838 (Version 6)
Quarter: 2020Q3

REPORT INFORMATION
  Report Type: Spontaneous
  Country: US (occurrence: US)
  Receive Date: 20200306
  Receipt Date: 20200706
  Transmission Date: 20201102
  Serious: Yes (Other)
  Sender: FDA-Public Use
  Company Number: US-ACTELION-A-NJ2020-202706

PATIENT
  Age: 70 Year
  Sex: Female
  Weight: 61.68 kg

DRUGS (2)
  1. OPSUMIT [Suspect]
     Active Substance: MACITENTAN
     Indication: PULMONARY ARTERIAL HYPERTENSION
     Dosage: 10 MG, QD
     Route: 048
  2. ADCIRCA [Concomitant]
     Active Substance: TADALAFIL

REACTIONS (6)
  - Feeling abnormal [Not Recovered/Not Resolved]
  - Wrong dose [Unknown]
  - Hepatic lesion [Unknown]
  - Cough [Not Recovered/Not Resolved]
  - Cholelithiasis [Unknown]
  - Renal cancer [Unknown]

NARRATIVE: CASE EVENT DATE: 20200329
